FAERS Safety Report 24294683 (Version 1)
Quarter: 2024Q3

REPORT INFORMATION
  Report Type: Spontaneous
  Country: PL (occurrence: PL)
  Receive Date: 20240906
  Receipt Date: 20240906
  Transmission Date: 20241016
  Serious: Yes (Other)
  Sender: MERCK
  Company Number: PL-PFIZER INC-PV202400110385

PATIENT
  Age: 74 Year
  Sex: Male

DRUGS (3)
  1. PEMBROLIZUMAB [Suspect]
     Active Substance: PEMBROLIZUMAB
     Indication: Immunochemotherapy
     Dosage: UNK
     Dates: start: 202305
  2. PEMETREXED [Suspect]
     Active Substance: PEMETREXED
     Indication: Immunochemotherapy
     Dosage: UNK
     Dates: start: 202305, end: 202405
  3. CARBOPLATIN [Suspect]
     Active Substance: CARBOPLATIN
     Indication: Immunochemotherapy
     Dosage: UNK
     Dates: start: 202305, end: 202405

REACTIONS (2)
  - Angina pectoris [Recovered/Resolved]
  - General physical health deterioration [Recovered/Resolved]
